FAERS Safety Report 9335706 (Version 1)
Quarter: 2013Q2

REPORT INFORMATION
  Report Type: Spontaneous
  Country: DE (occurrence: DE)
  Receive Date: 20130607
  Receipt Date: 20130607
  Transmission Date: 20140414
  Serious: Yes (Hospitalization)
  Sender: FDA-Public Use
  Company Number: DE-AMGEN-DEUSP2013040034

PATIENT
  Age: 41 Year
  Sex: Male

DRUGS (8)
  1. NEULASTA [Suspect]
     Indication: PRODUCT USED FOR UNKNOWN INDICATION
     Dosage: UNK
     Route: 065
  2. ADRIAMYCIN                         /00330901/ [Concomitant]
     Indication: HODGKIN^S DISEASE
     Dosage: UNK
  3. BLEOMYCIN [Concomitant]
     Indication: HODGKIN^S DISEASE
     Dosage: UNK
  4. PROCARBAZINE [Concomitant]
     Indication: HODGKIN^S DISEASE
     Dosage: UNK
  5. VINCRISTINE [Concomitant]
     Indication: HODGKIN^S DISEASE
     Dosage: UNK
  6. ETOPOSIDE [Concomitant]
     Indication: HODGKIN^S DISEASE
     Dosage: UNK
  7. CYCLOPHOSPHAMIDE [Concomitant]
     Indication: HODGKIN^S DISEASE
     Dosage: UNK
  8. PREDNISONE [Concomitant]
     Indication: HODGKIN^S DISEASE
     Dosage: UNK

REACTIONS (2)
  - Pain in extremity [Not Recovered/Not Resolved]
  - Bone pain [Not Recovered/Not Resolved]
